FAERS Safety Report 5116018-X (Version None)
Quarter: 2006Q3

REPORT INFORMATION
  Report Type: 
  Country: None (occurrence: None)
  Receive Date: 20060927
  Receipt Date: 20060221
  Transmission Date: 20061208
  Serious: No
  Sender: FDA-Public Use
  Company Number: US-BRISTOL-MYERS SQUIBB COMPANY-13290564

PATIENT
  Sex: Female

DRUGS (1)
  1. DEFINITY [Suspect]
     Indication: ECHOCARDIOGRAM
     Route: 040
     Dates: start: 20060220, end: 20060220

REACTIONS (5)
  - ARTHRALGIA [None]
  - DYSGEUSIA [None]
  - HEADACHE [None]
  - MALAISE [None]
  - SOMNOLENCE [None]
